FAERS Safety Report 7367632-2 (Version None)
Quarter: 2011Q1

REPORT INFORMATION
  Report Type: 
  Country: None (occurrence: None)
  Receive Date: 20110322
  Receipt Date: 20110318
  Transmission Date: 20110831
  Serious: Yes (Hospitalization, Other)
  Sender: FDA-Public Use
  Company Number: CA-ABBOTT-11P-028-0713016-00

PATIENT
  Sex: Female

DRUGS (1)
  1. HUMIRA [Suspect]
     Indication: PSORIASIS
     Route: 058
     Dates: start: 20100901

REACTIONS (6)
  - AMNESIA [None]
  - INJECTION SITE ERYTHEMA [None]
  - RASH MACULAR [None]
  - SEPSIS [None]
  - INJECTION SITE PRURITUS [None]
  - MYOCARDIAL INFARCTION [None]
